FAERS Safety Report 25177702 (Version 1)
Quarter: 2025Q2

REPORT INFORMATION
  Report Type: Spontaneous
  Country: US (occurrence: US)
  Receive Date: 20250409
  Receipt Date: 20250409
  Transmission Date: 20250716
  Serious: No
  Sender: PHARMACOSMOS
  Company Number: US-G1 THERAPEUTICS-2024G1US0000048

PATIENT

DRUGS (4)
  1. COSELA [Suspect]
     Active Substance: TRILACICLIB DIHYDROCHLORIDE
     Indication: Product used for unknown indication
  2. CARBOPLATIN [Concomitant]
     Active Substance: CARBOPLATIN
     Indication: Small cell lung cancer extensive stage
  3. ETOPOSIDE [Concomitant]
     Active Substance: ETOPOSIDE
     Indication: Small cell lung cancer extensive stage
  4. DURVALUMAB [Concomitant]
     Active Substance: DURVALUMAB
     Indication: Small cell lung cancer extensive stage

REACTIONS (1)
  - Infusion site reaction [Unknown]

NARRATIVE: CASE EVENT DATE: 20240501
